FAERS Safety Report 5257395-9 (Version None)
Quarter: 2007Q1

REPORT INFORMATION
  Report Type: 
  Country: None (occurrence: None)
  Receive Date: 20070307
  Receipt Date: 20060717
  Transmission Date: 20070707
  Serious: No
  Sender: FDA-Public Use
  Company Number: US-GLAXOSMITHKLINE-A0612504A

PATIENT
  Age: 77 Year
  Sex: Female

DRUGS (10)
  1. REQUIP [Suspect]
     Indication: RESTLESS LEGS SYNDROME
     Dosage: 1MG AT NIGHT
     Route: 048
     Dates: start: 20050501
  2. WARFARIN SODIUM [Suspect]
     Indication: ANTICOAGULANT THERAPY
     Dates: start: 20060701
  3. NEURONTIN [Concomitant]
  4. HYDROCODONE [Concomitant]
  5. PROZAC [Concomitant]
  6. THYROID TAB [Concomitant]
  7. VITAMINS [Concomitant]
  8. FOSAMAX [Concomitant]
  9. VALIUM [Concomitant]
  10. TOPROL-XL [Concomitant]

REACTIONS (2)
  - DRUG ADMINISTRATION ERROR [None]
  - DRUG INEFFECTIVE [None]
